FAERS Safety Report 19371532 (Version 1)
Quarter: 2021Q2

REPORT INFORMATION
  Report Type: Spontaneous
  Country: US (occurrence: US)
  Receive Date: 20210603
  Receipt Date: 20210603
  Transmission Date: 20210717
  Serious: No
  Sender: FDA-Public Use
  Company Number: US-SA-2021SA182921

PATIENT
  Sex: Female

DRUGS (7)
  1. CALCIUM VITAMIN D3 [CALCIUM CITRATE;COLECALCIFEROL] [Concomitant]
     Active Substance: CALCIUM CITRATE\CHOLECALCIFEROL
  2. KEVZARA [Suspect]
     Active Substance: SARILUMAB
     Indication: RHEUMATOID ARTHRITIS
     Route: 058
     Dates: start: 20190911
  3. IBUPROFEN. [Concomitant]
     Active Substance: IBUPROFEN
  4. MIRAPEX [Concomitant]
     Active Substance: PRAMIPEXOLE DIHYDROCHLORIDE
  5. DAILY VITE [ASCORBIC ACID;CALCIUM PANTOTHENATE;COLECALCIFEROL;CYANOCOB [Concomitant]
  6. METHOTREXATE. [Concomitant]
     Active Substance: METHOTREXATE
  7. PREDNISONE. [Concomitant]
     Active Substance: PREDNISONE

REACTIONS (1)
  - Hyperhidrosis [Not Recovered/Not Resolved]
